FAERS Safety Report 8182785-4 (Version None)
Quarter: 2012Q1

REPORT INFORMATION
  Report Type: 
  Country: None (occurrence: None)
  Receive Date: 20120305
  Receipt Date: 20120221
  Transmission Date: 20120608
  Serious: Yes (Hospitalization)
  Sender: FDA-Public Use
  Company Number: FR-CELGENEUS-056-50794-12022361

PATIENT
  Sex: Male

DRUGS (5)
  1. PIPERACILLIN AND TAZOBACTAM [Suspect]
     Route: 065
  2. PLAVIX [Suspect]
     Route: 065
  3. VIDAZA [Suspect]
     Route: 041
     Dates: end: 20120101
  4. LEVOFLOXACIN [Suspect]
     Route: 065
  5. VFEND [Suspect]
     Route: 065

REACTIONS (1)
  - PULMONARY FIBROSIS [None]
